FAERS Safety Report 9729999 (Version 2)
Quarter: 2014Q1

REPORT INFORMATION
  Report Type: Report from Study
  Country: BR (occurrence: BR)
  Receive Date: 20131204
  Receipt Date: 20140307
  Transmission Date: 20141002
  Serious: Yes (Other)
  Sender: FDA-Public Use
  Company Number: BR-ABBVIE-13P-020-1175253-00

PATIENT
  Age: 20 Year
  Sex: Female
  Weight: 42 kg

DRUGS (4)
  1. HUMIRA [Suspect]
     Indication: CROHN^S DISEASE
     Dosage: DAY 0
     Route: 058
     Dates: start: 20130901, end: 20130901
  2. HUMIRA [Suspect]
     Route: 058
     Dates: start: 201309
  3. MEZACOL [Concomitant]
     Indication: INFLAMMATION
     Dosage: 3 TIMES A DAY
     Route: 048
     Dates: start: 201305
  4. NEUTROFER [Concomitant]
     Indication: ANAEMIA
     Dosage: ONCE A DAY
     Route: 048
     Dates: start: 201309

REACTIONS (4)
  - Pyrexia [Recovered/Resolved]
  - Convulsion [Recovered/Resolved]
  - Pyrexia [Not Recovered/Not Resolved]
  - Chills [Not Recovered/Not Resolved]
